FAERS Safety Report 16441431 (Version 1)
Quarter: 2019Q2

REPORT INFORMATION
  Report Type: Report from Study
  Country: US (occurrence: US)
  Receive Date: 20190617
  Receipt Date: 20190617
  Transmission Date: 20190711
  Serious: Yes (Other)
  Sender: FDA-Public Use
  Company Number: US-BAYER-2019-115163

PATIENT
  Age: 58 Year
  Sex: Male

DRUGS (2)
  1. NEXAVAR [Suspect]
     Active Substance: SORAFENIB
     Indication: CARCINOID TUMOUR
     Dosage: 800 MG, QD
  2. NEXAVAR [Suspect]
     Active Substance: SORAFENIB
     Indication: CARCINOID TUMOUR
     Dosage: 200 MG, QD

REACTIONS (2)
  - Fatigue [Recovered/Resolved]
  - Loss of consciousness [Recovered/Resolved]

NARRATIVE: CASE EVENT DATE: 201903
